FAERS Safety Report 20847961 (Version 5)
Quarter: 2022Q3

REPORT INFORMATION
  Report Type: Other
  Country: IT (occurrence: None)
  Receive Date: 20220519
  Receipt Date: 20220929
  Transmission Date: 20221026
  Serious: Yes (Hospitalization)
  Sender: FDA-Public Use
  Company Number: IT-ROCHE-3095341

PATIENT
  Age: 64 Year
  Sex: Female
  Weight: 62 kg

DRUGS (31)
  1. PERTUZUMAB [Suspect]
     Active Substance: PERTUZUMAB
     Indication: HER2 positive breast cancer
     Route: 042
     Dates: start: 20190418, end: 20190926
  2. ADO-TRASTUZUMAB EMTANSINE [Suspect]
     Active Substance: ADO-TRASTUZUMAB EMTANSINE
     Indication: HER2 positive breast cancer
     Route: 042
     Dates: start: 20201021, end: 20210609
  3. ADO-TRASTUZUMAB EMTANSINE [Suspect]
     Active Substance: ADO-TRASTUZUMAB EMTANSINE
     Route: 042
     Dates: start: 20210609, end: 20210630
  4. ADO-TRASTUZUMAB EMTANSINE [Suspect]
     Active Substance: ADO-TRASTUZUMAB EMTANSINE
     Route: 042
     Dates: start: 20220126
  5. ADO-TRASTUZUMAB EMTANSINE [Suspect]
     Active Substance: ADO-TRASTUZUMAB EMTANSINE
     Route: 042
     Dates: start: 20201021, end: 20210609
  6. ADO-TRASTUZUMAB EMTANSINE [Suspect]
     Active Substance: ADO-TRASTUZUMAB EMTANSINE
     Route: 042
     Dates: start: 20210630, end: 20220105
  7. EXEMESTANE [Suspect]
     Active Substance: EXEMESTANE
     Indication: HER2 positive breast cancer
     Route: 048
     Dates: start: 20190801, end: 20201021
  8. DOCETAXEL [Suspect]
     Active Substance: DOCETAXEL
     Indication: HER2 positive breast cancer
     Dosage: MOST RECENT DOSE PRIOR TO AE 11/JUL/2019
     Route: 042
     Dates: start: 20190418
  9. FUROSEMIDE [Concomitant]
     Active Substance: FUROSEMIDE
     Dosage: ONGOING = CHECKED
     Route: 048
     Dates: start: 20210826
  10. BISOPROLOL FUMARATE [Concomitant]
     Active Substance: BISOPROLOL FUMARATE
     Indication: Left ventricular dysfunction
     Dosage: ONGOING = CHECKED
     Route: 048
     Dates: start: 20210826, end: 20220222
  11. BISOPROLOL FUMARATE [Concomitant]
     Active Substance: BISOPROLOL FUMARATE
     Dosage: ONGOING = CHECKED
     Route: 048
     Dates: start: 20190926
  12. BISOPROLOL FUMARATE [Concomitant]
     Active Substance: BISOPROLOL FUMARATE
     Dosage: ONGOING = CHECKED
     Route: 048
     Dates: start: 20220223
  13. CHLORPHENIRAMINE MALEATE [Concomitant]
     Active Substance: CHLORPHENIRAMINE MALEATE
     Dosage: ONGOING = CHECKED
     Route: 042
     Dates: start: 20201021
  14. CHLORPHENIRAMINE MALEATE [Concomitant]
     Active Substance: CHLORPHENIRAMINE MALEATE
     Dosage: ONGOING = CHECKED
     Route: 042
     Dates: start: 20190328, end: 20190711
  15. GRANISETRON [Concomitant]
     Active Substance: GRANISETRON
     Indication: Breast cancer
     Dosage: ONGOING = CHECKED
     Route: 042
     Dates: start: 20201021
  16. GRANISETRON [Concomitant]
     Active Substance: GRANISETRON
     Dosage: ONGOING = CHECKED
     Route: 042
     Dates: start: 20190328, end: 20190711
  17. DEXAMETHASONE [Concomitant]
     Active Substance: DEXAMETHASONE
     Dosage: ONGOING = CHECKED
     Route: 042
     Dates: start: 20201021
  18. NALOXONE HYDROCHLORIDE\OXYCODONE HYDROCHLORIDE [Concomitant]
     Active Substance: NALOXONE HYDROCHLORIDE\OXYCODONE HYDROCHLORIDE
     Dosage: ONGOING = CHECKED
     Route: 048
     Dates: start: 20201021
  19. NALOXONE HYDROCHLORIDE\OXYCODONE HYDROCHLORIDE [Concomitant]
     Active Substance: NALOXONE HYDROCHLORIDE\OXYCODONE HYDROCHLORIDE
     Dosage: ONGOING = CHECKED
     Route: 048
     Dates: start: 20201007, end: 20201020
  20. FLUIMUCIL [Concomitant]
     Active Substance: ACETYLCYSTEINE
     Dosage: ONGOING = CHECKED
     Route: 048
     Dates: start: 20201202
  21. PANTOPRAZOLE SODIUM [Concomitant]
     Active Substance: PANTOPRAZOLE SODIUM
     Dosage: ONGOING = CHECKED
     Route: 048
     Dates: start: 20201223
  22. PANTOPRAZOLE SODIUM [Concomitant]
     Active Substance: PANTOPRAZOLE SODIUM
     Dosage: ONGOING = CHECKED
     Route: 048
     Dates: start: 20190926
  23. EDOXABAN [Concomitant]
     Active Substance: EDOXABAN
     Indication: Left ventricular dysfunction
     Dosage: ONGOING = CHECKED
     Route: 048
     Dates: start: 20191009
  24. EDOXABAN [Concomitant]
     Active Substance: EDOXABAN
     Dosage: ONGOING = CHECKED
     Route: 048
     Dates: start: 20210826
  25. ENTRESTO [Concomitant]
     Active Substance: SACUBITRIL\VALSARTAN
     Indication: Left ventricular dysfunction
     Dosage: ONGOING = CHECKED
     Route: 048
     Dates: start: 20210826
  26. ENTRESTO [Concomitant]
     Active Substance: SACUBITRIL\VALSARTAN
     Dosage: ONGOING = CHECKED
     Dates: start: 20191009
  27. ENTRESTO [Concomitant]
     Active Substance: SACUBITRIL\VALSARTAN
     Dosage: ONGOING = CHECKED
     Route: 048
     Dates: start: 20190926
  28. LASIX [Concomitant]
     Active Substance: FUROSEMIDE
     Indication: Left ventricular dysfunction
     Dosage: ONGOING = CHECKED
     Route: 048
     Dates: start: 20191009
  29. METHYLPREDNISOLONE [Concomitant]
     Active Substance: METHYLPREDNISOLONE
     Route: 042
     Dates: start: 20190418
  30. NEULASTA [Concomitant]
     Active Substance: PEGFILGRASTIM
     Route: 058
     Dates: start: 20190328
  31. ACETAMINOPHEN [Concomitant]
     Active Substance: ACETAMINOPHEN
     Route: 048

REACTIONS (2)
  - Anaemia [Not Recovered/Not Resolved]
  - Anaemia [Recovered/Resolved]

NARRATIVE: CASE EVENT DATE: 20220105
